FAERS Safety Report 9984559 (Version 2)
Quarter: 2014Q2

REPORT INFORMATION
  Report Type: Spontaneous
  Country: DE (occurrence: DE)
  Receive Date: 20140307
  Receipt Date: 20140407
  Transmission Date: 20141212
  Serious: Yes (Other)
  Sender: FDA-Public Use
  Company Number: DE-ALLERGAN-1403952US

PATIENT
  Age: 59 Year
  Sex: Male
  Weight: 89 kg

DRUGS (1)
  1. GANFORT [Suspect]
     Indication: GLAUCOMA
     Dosage: UNK
     Dates: start: 2012, end: 201402

REACTIONS (1)
  - Hepatic enzyme increased [Unknown]
